FAERS Safety Report 10206480 (Version 1)
Quarter: 2014Q2

REPORT INFORMATION
  Report Type: Spontaneous
  Country: US (occurrence: None)
  Receive Date: 20140528
  Receipt Date: 20140528
  Transmission Date: 20141212
  Serious: No
  Sender: FDA-Public Use
  Company Number: None

PATIENT
  Age: 52 Year
  Sex: Male

DRUGS (6)
  1. SIMVASTATIN [Suspect]
     Indication: HYPERLIPIDAEMIA
     Dates: start: 20110208, end: 201211
  2. CLOBETASOL (TEMIVATE) 0.05%CREAM [Concomitant]
  3. EFFEXOR XR [Concomitant]
  4. FISH OIL (SEA OMEGA 50) [Concomitant]
  5. LORATADINE [Concomitant]
  6. OMEPRAZOLE [Concomitant]

REACTIONS (3)
  - Hepatic steatosis [None]
  - Haemosiderosis [None]
  - Drug-induced liver injury [None]
